FAERS Safety Report 10853619 (Version 1)
Quarter: 2015Q1

REPORT INFORMATION
  Report Type: Spontaneous
  Country: None (occurrence: None)
  Receive Date: 20150218
  Receipt Date: 20150218
  Transmission Date: 20150721
  Serious: Yes (Hospitalization)
  Sender: FDA-Public Use
  Company Number: None

PATIENT
  Age: 5 Year
  Sex: Female
  Weight: 18.1 kg

DRUGS (1)
  1. PEGINTERFERON ALFA-2B (PEG-INTRON) [Suspect]
     Active Substance: PEGINTERFERON ALFA-2B
     Dates: end: 20150129

REACTIONS (14)
  - Brain mass [None]
  - Drug dose omission [None]
  - Subdural haematoma [None]
  - Hemiparesis [None]
  - Device related infection [None]
  - Condition aggravated [None]
  - Cerebral ischaemia [None]
  - Brain oedema [None]
  - Headache [None]
  - Intracranial pressure increased [None]
  - Tremor [None]
  - Dizziness [None]
  - VIIth nerve paralysis [None]
  - Speech disorder [None]

NARRATIVE: CASE EVENT DATE: 20150131
